FAERS Safety Report 11397031 (Version 1)
Quarter: 2015Q3

REPORT INFORMATION
  Report Type: Spontaneous
  Country: US (occurrence: US)
  Receive Date: 20150819
  Receipt Date: 20150819
  Transmission Date: 20151125
  Serious: No
  Sender: FDA-Public Use
  Company Number: US-PFIZER INC-2014216384

PATIENT
  Age: 62 Year
  Sex: Female
  Weight: 128 kg

DRUGS (21)
  1. NORTRIPTYLINE [Concomitant]
     Active Substance: NORTRIPTYLINE
     Dosage: UNK
  2. ALBUTEROL. [Concomitant]
     Active Substance: ALBUTEROL
     Dosage: UNK
  3. PHENYTOIN SODIUM. [Suspect]
     Active Substance: PHENYTOIN SODIUM
     Indication: SEIZURE
     Dosage: UNK, 5X/DAY
  4. HYDROXYZINE [Concomitant]
     Active Substance: HYDROXYZINE\HYDROXYZINE HYDROCHLORIDE
     Indication: PRURITUS
     Dosage: 25 MG, 4X/DAY (ONCE EVERY SIX HOURS)
  5. SERTRALINE [Concomitant]
     Active Substance: SERTRALINE HYDROCHLORIDE
     Dosage: 100 MG, 2X/DAY
  6. ACIMAX [Concomitant]
     Active Substance: OMEPRAZOLE
     Dosage: UNK
  7. ASCOMP-CODEIN [Concomitant]
     Dosage: UNK
  8. ALPRAZOLAM. [Concomitant]
     Active Substance: ALPRAZOLAM
     Dosage: UNK
  9. PLAQUENIL [Concomitant]
     Active Substance: HYDROXYCHLOROQUINE SULFATE
     Dosage: UNK
  10. FUROSEMIDE. [Concomitant]
     Active Substance: FUROSEMIDE
     Dosage: 40 MG, UNK
  11. POTASSIUM [Concomitant]
     Active Substance: POTASSIUM
     Dosage: 200 MG, 2X/DAY
  12. LYRICA [Concomitant]
     Active Substance: PREGABALIN
     Dosage: 225 MG, 2X/DAY
  13. ATENOLOL. [Concomitant]
     Active Substance: ATENOLOL
     Dosage: UNK
  14. SYNTHROID [Concomitant]
     Active Substance: LEVOTHYROXINE SODIUM
     Dosage: UNK
  15. VITAMIN D 1000 [Concomitant]
     Dosage: UNK
  16. PANTOPRAZOLE [Concomitant]
     Active Substance: PANTOPRAZOLE SODIUM
     Dosage: UNK
  17. PREDNISONE. [Concomitant]
     Active Substance: PREDNISONE
     Dosage: 5 MG, 1X/DAY (5MG TAB BY CUTTING THE 10MG TABLET INTO HALF ONCE A DAY)
  18. ACUTRIM [Concomitant]
     Dosage: 375 MG, 1X/DAY
  19. METOLAZONE. [Concomitant]
     Active Substance: METOLAZONE
     Dosage: UNK
  20. CLARINEX [Concomitant]
     Active Substance: DESLORATADINE
     Dosage: UNK
  21. CELEBREX [Concomitant]
     Active Substance: CELECOXIB
     Dosage: UNK

REACTIONS (1)
  - Drug ineffective [Unknown]
